FAERS Safety Report 10885105 (Version 1)
Quarter: 2015Q1

REPORT INFORMATION
  Report Type: Spontaneous
  Country: US (occurrence: None)
  Receive Date: 20150227
  Receipt Date: 20150227
  Transmission Date: 20150721
  Serious: Yes (Life-Threatening, Hospitalization)
  Sender: FDA-Public Use
  Company Number: None

PATIENT
  Age: 57 Year
  Sex: Male
  Weight: 148.6 kg

DRUGS (2)
  1. MORPHINE [Suspect]
     Active Substance: MORPHINE
     Indication: PAIN
     Route: 048
     Dates: start: 20140630, end: 20140910
  2. MORPHINE [Suspect]
     Active Substance: MORPHINE
     Indication: SEPSIS
     Route: 048
     Dates: start: 20140630, end: 20140910

REACTIONS (8)
  - Sedation [None]
  - Lip discolouration [None]
  - Depression [None]
  - Lethargy [None]
  - Respiratory depression [None]
  - Somnolence [None]
  - Depressed level of consciousness [None]
  - Acute kidney injury [None]

NARRATIVE: CASE EVENT DATE: 20140910
